FAERS Safety Report 23161188 (Version 1)
Quarter: 2023Q4

REPORT INFORMATION
  Report Type: Spontaneous
  Country: NO (occurrence: NO)
  Receive Date: 20231108
  Receipt Date: 20231108
  Transmission Date: 20240110
  Serious: Yes (Hospitalization, Other)
  Sender: FDA-Public Use
  Company Number: NO-MYLANLABS-2023M1113675

PATIENT
  Sex: Female

DRUGS (1)
  1. TAMOXIFEN [Suspect]
     Active Substance: TAMOXIFEN
     Indication: Product used for unknown indication
     Dosage: UNK
     Route: 065
     Dates: start: 20100101, end: 2022

REACTIONS (5)
  - Endometrial hyperplasia [Unknown]
  - Endometrial cancer [Unknown]
  - Uterine haemorrhage [Unknown]
  - Retinopathy [Not Recovered/Not Resolved]
  - Venous thrombosis [Unknown]

NARRATIVE: CASE EVENT DATE: 20220101
